FAERS Safety Report 4387957-2 (Version None)
Quarter: 2004Q2

REPORT INFORMATION
  Report Type: 
  Country: None (occurrence: None)
  Receive Date: 20040630
  Receipt Date: 20030507
  Transmission Date: 20050107
  Serious: Yes (Hospitalization)
  Sender: FDA-Public Use
  Company Number: AU-MERCK-0305AUS00044

PATIENT
  Age: 76 Year
  Sex: Male
  Weight: 86 kg

DRUGS (11)
  1. ATORVASTATIN CALCIUM [Concomitant]
     Route: 065
  2. DIGOXIN [Concomitant]
     Route: 065
     Dates: end: 20021023
  3. FUROSEMIDE [Suspect]
     Route: 048
     Dates: start: 20000101
  4. GABAPENTIN [Concomitant]
     Route: 065
  5. INSULIN LISPRO [Concomitant]
     Route: 065
  6. ISOSORBIDE MONONITRATE [Concomitant]
     Route: 065
  7. OMEPRAZOLE MAGNESIUM [Concomitant]
     Indication: PEPTIC ULCER
     Route: 065
  8. PERINDOPRIL ERBUMINE [Suspect]
     Indication: ESSENTIAL HYPERTENSION
     Route: 048
     Dates: start: 20000101
  9. PREDNISOLONE [Concomitant]
     Route: 065
  10. VIOXX [Suspect]
     Route: 048
     Dates: start: 20011201, end: 20021023
  11. WARFARIN SODIUM [Concomitant]
     Route: 065

REACTIONS (2)
  - DRUG INTERACTION [None]
  - RENAL FAILURE ACUTE [None]
